FAERS Safety Report 17388380 (Version 1)
Quarter: 2020Q1

REPORT INFORMATION
  Report Type: Report from Study
  Country: CA (occurrence: CA)
  Receive Date: 20200206
  Receipt Date: 20200206
  Transmission Date: 20200409
  Serious: Yes (Other)
  Sender: FDA-Public Use
  Company Number: CA-SHIRE-CA201937007

PATIENT

DRUGS (1)
  1. HUMAN NORMAL IMMUNOGLOBULIN; LIQUID 20 [Suspect]
     Active Substance: HUMAN IMMUNOGLOBULIN G
     Indication: PRIMARY IMMUNODEFICIENCY SYNDROME
     Dosage: 22 GRAM, 1X/WEEK
     Route: 058
     Dates: start: 20191018

REACTIONS (6)
  - Abdominal pain [Unknown]
  - Nasopharyngitis [Recovered/Resolved]
  - Contusion [Unknown]
  - Infusion site urticaria [Unknown]
  - Infusion site swelling [Recovered/Resolved]
  - Paraesthesia [Unknown]
